FAERS Safety Report 11705027 (Version 10)
Quarter: 2018Q4

REPORT INFORMATION
  Report Type: Spontaneous
  Country: US (occurrence: US)
  Receive Date: 20151106
  Receipt Date: 20181011
  Transmission Date: 20190204
  Serious: Yes (Hospitalization, Other)
  Sender: FDA-Public Use
  Company Number: US-PFIZER INC-2015370134

PATIENT
  Age: 84 Year
  Sex: Female
  Weight: 48.98 kg

DRUGS (4)
  1. IBRANCE [Suspect]
     Active Substance: PALBOCICLIB
     Indication: BREAST CANCER METASTATIC
     Dosage: 125 MG, CYCLIC (DAY 1-21 EVERY 28 DAYS)
     Route: 048
     Dates: start: 20151015, end: 201809
  2. IBRANCE [Suspect]
     Active Substance: PALBOCICLIB
     Dosage: 125 MG, CYCLIC (DAYS 1-21 Q28 DAYS)
     Route: 048
  3. IBRANCE [Suspect]
     Active Substance: PALBOCICLIB
     Dosage: 125 MG, CYCLIC (DAYS 1-21 Q28 DAYS)
     Route: 048
  4. IBRANCE [Suspect]
     Active Substance: PALBOCICLIB
     Dosage: 125 MG, CYCLIC (DAY 1-21 EVERY 28 DAYS)
     Route: 048

REACTIONS (12)
  - Cough [Unknown]
  - Hip fracture [Unknown]
  - Fatigue [Unknown]
  - Hyperchlorhydria [Unknown]
  - Rash [Not Recovered/Not Resolved]
  - Gastrooesophageal reflux disease [Unknown]
  - Breast pain [Recovered/Resolved]
  - Erythema [Not Recovered/Not Resolved]
  - Memory impairment [Unknown]
  - Product dose omission [Unknown]
  - Anaemia [Unknown]
  - Dyspepsia [Unknown]

NARRATIVE: CASE EVENT DATE: 20151102
